FAERS Safety Report 10043459 (Version 1)
Quarter: 2014Q1

REPORT INFORMATION
  Report Type: Spontaneous
  Country: US (occurrence: US)
  Receive Date: 20140328
  Receipt Date: 20140328
  Transmission Date: 20141002
  Serious: No
  Sender: FDA-Public Use
  Company Number: US-PFIZER INC-2014087149

PATIENT
  Age: 50 Year
  Sex: Female
  Weight: 113.38 kg

DRUGS (12)
  1. NEURONTIN [Suspect]
     Indication: DIABETIC NEUROPATHY
     Dosage: 600 MG, 3X/DAY
     Dates: start: 201402
  2. LISINOPRIL [Concomitant]
     Indication: HYPERTENSION
     Dosage: 5 MG, DAILY
  3. GLIPIZIDE [Concomitant]
     Indication: DIABETES MELLITUS
     Dosage: 2.5 MG, DAILY
  4. METFORMIN [Concomitant]
     Indication: DIABETES MELLITUS
     Dosage: 1500 MG, DAILY (500MG IN THE MORNING AND 1000MG AT NIGHT)
  5. FISH OIL [Concomitant]
     Dosage: 1200 IU, UNK
  6. VITAMIN C [Concomitant]
     Dosage: 500 IU, UNK
  7. ZINC [Concomitant]
     Dosage: 50 IU, UNK
  8. VITAMIN D [Concomitant]
     Dosage: 2000 IU, UNK
  9. MAGNESIUM [Concomitant]
     Dosage: UNK
  10. CALCIUM [Concomitant]
     Dosage: UNK
  11. CINNAMON [Concomitant]
     Dosage: UNK
  12. COSAMIN [Concomitant]
     Dosage: UNK

REACTIONS (1)
  - Drug ineffective [Unknown]
